FAERS Safety Report 24918777 (Version 3)
Quarter: 2025Q1

REPORT INFORMATION
  Report Type: Report from Study
  Country: US (occurrence: US)
  Receive Date: 20250204
  Receipt Date: 20250220
  Transmission Date: 20250408
  Serious: Yes (Other)
  Sender: ABBVIE
  Company Number: US-ABBVIE-6113435

PATIENT
  Age: 67 Year
  Sex: Female
  Weight: 77.11 kg

DRUGS (3)
  1. RINVOQ [Suspect]
     Active Substance: UPADACITINIB
     Indication: Colitis ulcerative
     Route: 048
     Dates: start: 2023, end: 20250124
  2. LANSOPRAZOLE [Concomitant]
     Active Substance: LANSOPRAZOLE
     Indication: Barrett^s oesophagus
  3. STELARA [Concomitant]
     Active Substance: USTEKINUMAB
     Indication: Osteoarthritis
     Dates: end: 202501

REACTIONS (11)
  - Shoulder fracture [Recovering/Resolving]
  - Abdominal discomfort [Not Recovered/Not Resolved]
  - Malaise [Not Recovered/Not Resolved]
  - Inflammation [Unknown]
  - Diarrhoea [Not Recovered/Not Resolved]
  - Constipation [Not Recovered/Not Resolved]
  - Upper limb fracture [Unknown]
  - Lower limb fracture [Unknown]
  - Ligament rupture [Unknown]
  - Arthralgia [Unknown]
  - Arthralgia [Unknown]

NARRATIVE: CASE EVENT DATE: 20240915
